FAERS Safety Report 23949495 (Version 2)
Quarter: 2024Q3

REPORT INFORMATION
  Report Type: Spontaneous
  Country: JP (occurrence: JP)
  Receive Date: 20240607
  Receipt Date: 20240812
  Transmission Date: 20241017
  Serious: No
  Sender: ASTELLAS
  Company Number: JP-ASTELLAS-2024JP003892

PATIENT
  Age: 9 Decade
  Sex: Male

DRUGS (4)
  1. XTANDI [Suspect]
     Active Substance: ENZALUTAMIDE
     Indication: Hormone-refractory prostate cancer
     Route: 048
     Dates: start: 20231226, end: 20240213
  2. XTANDI [Suspect]
     Active Substance: ENZALUTAMIDE
     Route: 048
     Dates: start: 20240514
  3. CALCIUM CHLORIDE ANHYDROUS\POTASSIUM CHLORIDE\SODIUM CHLORIDE\SODIUM L [Concomitant]
     Active Substance: CALCIUM CHLORIDE ANHYDROUS\POTASSIUM CHLORIDE\SODIUM CHLORIDE\SODIUM LACTATE
     Indication: Supraventricular tachycardia
     Dosage: UNK UNK, UNKNOWN FREQ.
     Route: 065
     Dates: start: 202401
  4. Vasolan [Concomitant]
     Indication: Supraventricular tachycardia
     Dosage: UNK UNK, AS NEEDED
     Route: 065
     Dates: start: 202401

REACTIONS (2)
  - Supraventricular tachycardia [Recovered/Resolved]
  - Malaise [Recovered/Resolved]

NARRATIVE: CASE EVENT DATE: 20240101
